FAERS Safety Report 7406767-2 (Version None)
Quarter: 2011Q2

REPORT INFORMATION
  Report Type: 
  Country: None (occurrence: None)
  Receive Date: 20110411
  Receipt Date: 20110329
  Transmission Date: 20111010
  Serious: Yes (Hospitalization)
  Sender: FDA-Public Use
  Company Number: PHHY2011GR26111

PATIENT
  Age: 60 Year
  Sex: Female

DRUGS (6)
  1. METHOTREXATE [Suspect]
     Indication: BREAST CANCER
     Dosage: 12 MG TWICE/WEEK
     Route: 037
  2. METHOTREXATE [Suspect]
     Dosage: UNK UKN, UNK
  3. TAMOXIFEN CITRATE [Concomitant]
     Indication: BREAST CANCER
  4. CYCLOPHOSPHAMIDE [Concomitant]
     Indication: BREAST CANCER
  5. FLUOROURACIL [Concomitant]
     Indication: BREAST CANCER
  6. METHOTREXATE [Suspect]
     Dosage: UNK UKN, UNK

REACTIONS (8)
  - SPEECH DISORDER [None]
  - PYREXIA [None]
  - MENTAL IMPAIRMENT [None]
  - ANAEMIA [None]
  - LOSS OF CONSCIOUSNESS [None]
  - EATING DISORDER [None]
  - BEDRIDDEN [None]
  - CONFUSIONAL STATE [None]
